FAERS Safety Report 22239443 (Version 1)
Quarter: 2023Q2

REPORT INFORMATION
  Report Type: Spontaneous
  Country: SE (occurrence: SE)
  Receive Date: 20230421
  Receipt Date: 20230421
  Transmission Date: 20230722
  Serious: Yes (Hospitalization, Other)
  Sender: FDA-Public Use
  Company Number: SE-MYLANLABS-2023M1042632

PATIENT
  Age: 21 Year
  Sex: Male

DRUGS (30)
  1. CITALOPRAM [Suspect]
     Active Substance: CITALOPRAM HYDROBROMIDE
     Indication: Schizoaffective disorder
     Dosage: UNK
     Route: 065
     Dates: start: 1997
  2. CITALOPRAM [Suspect]
     Active Substance: CITALOPRAM HYDROBROMIDE
     Dosage: CITALOPRAM WAS RE-INITIATED
     Route: 065
     Dates: start: 200504
  3. ZOLPIDEM [Suspect]
     Active Substance: ZOLPIDEM TARTRATE
     Indication: Product used for unknown indication
     Dosage: 7.5 MILLIGRAM
     Route: 065
     Dates: start: 199801
  4. VENLAFAXINE [Suspect]
     Active Substance: VENLAFAXINE HYDROCHLORIDE
     Indication: Schizoaffective disorder
     Dosage: 150 MILLIGRAM
     Route: 065
     Dates: start: 199803, end: 1998
  5. VENLAFAXINE [Suspect]
     Active Substance: VENLAFAXINE HYDROCHLORIDE
     Dosage: 150 MILLIGRAM
     Route: 065
     Dates: start: 200011, end: 200012
  6. CAFFEINE [Suspect]
     Active Substance: CAFFEINE
     Indication: Product used for unknown indication
     Dosage: UNK
     Route: 065
  7. RISPERIDONE [Suspect]
     Active Substance: RISPERIDONE
     Indication: Schizoaffective disorder
     Dosage: 3 MILLIGRAM
     Route: 065
     Dates: start: 199804
  8. RISPERIDONE [Suspect]
     Active Substance: RISPERIDONE
     Dosage: 4 MILLIGRAM, TAPERED
     Route: 065
     Dates: start: 200002
  9. RISPERIDONE [Suspect]
     Active Substance: RISPERIDONE
     Dosage: UNK
     Route: 065
     Dates: start: 200011
  10. RISPERIDONE [Suspect]
     Active Substance: RISPERIDONE
     Dosage: REBOXETINE 6MG WAS ADDED FOR 2 MONTHS TO RISPERIDONE
     Route: 065
     Dates: start: 202103
  11. RISPERIDONE [Suspect]
     Active Substance: RISPERIDONE
     Dosage: RISPERIDONE REINITIATED
     Route: 065
     Dates: start: 202109
  12. CLOZAPINE [Suspect]
     Active Substance: CLOZAPINE
     Indication: Schizoaffective disorder
     Dosage: UNK,INCREASED THE DOSE
     Route: 065
     Dates: start: 200110
  13. CLOZAPINE [Suspect]
     Active Substance: CLOZAPINE
     Dosage: 500 MILLIGRAM,INCREASED THE DOSE
     Route: 065
     Dates: start: 200112
  14. CLOZAPINE [Suspect]
     Active Substance: CLOZAPINE
     Dosage: 600 MILLIGRAM,INCREASED THE DOSE
     Route: 065
     Dates: start: 200207
  15. CLOZAPINE [Suspect]
     Active Substance: CLOZAPINE
     Dosage: 650 MILLIGRAM,DECREASED THE DOSE
     Route: 065
     Dates: start: 200404
  16. CLOZAPINE [Suspect]
     Active Substance: CLOZAPINE
     Dosage: CLOZAPINE DOSAGE WAS REDUCED
     Route: 065
     Dates: start: 200502
  17. CLOZAPINE [Suspect]
     Active Substance: CLOZAPINE
     Dosage: FURTHER TAPERING OF CLOZAPINE.
     Route: 065
     Dates: start: 201906
  18. LITHIUM [Suspect]
     Active Substance: LITHIUM
     Indication: Schizoaffective disorder
     Dosage: UNK,6 X 42 MG; MONOTHERAPY
     Route: 065
     Dates: start: 199811
  19. LITHIUM [Suspect]
     Active Substance: LITHIUM
     Dosage: INTENTIONALLY DISCONTINUED THERAPY BY HIMSELF (INTENTIONAL DRUG MISUSE AND RE STARTED
     Route: 065
  20. LITHIUM [Suspect]
     Active Substance: LITHIUM
     Indication: Schizoaffective disorder
     Dosage: UNK, UNK, 6 X 42 MG
     Route: 065
     Dates: start: 200002, end: 200012
  21. LITHIUM [Suspect]
     Active Substance: LITHIUM
     Dosage: RISPERIDONE AND LITHIUM WERE REINITIATED,
     Route: 065
     Dates: start: 202109
  22. DESMOPRESSIN [Suspect]
     Active Substance: DESMOPRESSIN
     Indication: Enuresis
     Dosage: 0.2 MILLIGRAM
     Route: 065
     Dates: start: 200603
  23. NEFAZODONE [Suspect]
     Active Substance: NEFAZODONE
     Indication: Schizoaffective disorder
     Dosage: 100 MILLIGRAM
     Route: 065
     Dates: start: 199801
  24. NEFAZODONE [Suspect]
     Active Substance: NEFAZODONE
     Dosage: 200 MILLIGRAM
     Route: 065
     Dates: start: 199801
  25. NEFAZODONE [Suspect]
     Active Substance: NEFAZODONE
     Dosage: 400 MILLIGRAM
     Route: 065
     Dates: start: 199802
  26. REBOXETINE [Suspect]
     Active Substance: REBOXETINE
     Indication: Schizoaffective disorder
     Dosage: 6 MILLIGRAM
     Route: 065
     Dates: start: 200103
  27. ZIPRASIDONE [Suspect]
     Active Substance: ZIPRASIDONE
     Indication: Schizoaffective disorder
     Dosage: 80 MILLIGRAM
     Route: 065
  28. VALPROATE [Concomitant]
     Active Substance: VALPROIC ACID
     Indication: Schizoaffective disorder
     Dosage: 80 MILLIGRAM
     Route: 065
  29. PERPHENAZINE [Concomitant]
     Active Substance: PERPHENAZINE
     Indication: Schizoaffective disorder
     Dosage: 24 MILLIGRAM
     Route: 065
  30. PERPHENAZINE [Concomitant]
     Active Substance: PERPHENAZINE
     Dosage: AND EVENTUALLY TAPERED  AND DISCONTINUED
     Route: 065

REACTIONS (6)
  - Drug ineffective [Unknown]
  - Suicide attempt [Unknown]
  - Constipation [Recovered/Resolved]
  - Salivary hypersecretion [Recovering/Resolving]
  - Enuresis [Recovering/Resolving]
  - Intentional overdose [Unknown]
